FAERS Safety Report 12993986 (Version 1)
Quarter: 2016Q4

REPORT INFORMATION
  Report Type: Spontaneous
  Country: US (occurrence: US)
  Receive Date: 20161201
  Receipt Date: 20161201
  Transmission Date: 20170207
  Serious: Yes (Hospitalization)
  Sender: FDA-Public Use
  Company Number: None

PATIENT
  Age: 67 Year
  Sex: Male
  Weight: 93.1 kg

DRUGS (20)
  1. ASPIRIN. [Concomitant]
     Active Substance: ASPIRIN
  2. VITAMIN B COMPLEX [Concomitant]
     Active Substance: CYANOCOBALAMIN\DEXPANTHENOL\NIACINAMIDE\PYRIDOXINE HYDROCHLORIDE\RIBOFLAVIN 5^-PHOSPHATE SODIUM\THIAMINE HYDROCHLORIDE\VITAMIN B COMPLEX
  3. COLACE [Concomitant]
     Active Substance: DOCUSATE SODIUM
  4. SYNTHROID [Concomitant]
     Active Substance: LEVOTHYROXINE SODIUM
  5. PERCOCET [Concomitant]
     Active Substance: ACETAMINOPHEN\OXYCODONE HYDROCHLORIDE
  6. DIGOXIN. [Concomitant]
     Active Substance: DIGOXIN
  7. NOVOLOG MIX 70/30 [Suspect]
     Active Substance: INSULIN ASPART
     Indication: TYPE 2 DIABETES MELLITUS
     Route: 058
  8. GABAPENTIN. [Concomitant]
     Active Substance: GABAPENTIN
  9. LOVASTATIN. [Concomitant]
     Active Substance: LOVASTATIN
  10. MIRALAX [Concomitant]
     Active Substance: POLYETHYLENE GLYCOL 3350
  11. ALBUTEROL INHALER [Concomitant]
     Active Substance: ALBUTEROL
  12. LISINOPRIL. [Concomitant]
     Active Substance: LISINOPRIL
  13. ZEMPLAR [Concomitant]
     Active Substance: PARICALCITOL
  14. SEVELAMER [Concomitant]
     Active Substance: SEVELAMER
  15. LOTRIMIN CREAM [Concomitant]
  16. EPOGEN [Concomitant]
     Active Substance: ERYTHROPOIETIN
  17. OMEPRAZOLE. [Concomitant]
     Active Substance: OMEPRAZOLE
  18. PREDNISONE. [Concomitant]
     Active Substance: PREDNISONE
  19. WARFARIN [Concomitant]
     Active Substance: WARFARIN
  20. ISORDIL [Concomitant]
     Active Substance: ISOSORBIDE DINITRATE

REACTIONS (4)
  - Fluid overload [None]
  - Cardiac failure acute [None]
  - Dyspnoea [None]
  - Hypoglycaemia [None]

NARRATIVE: CASE EVENT DATE: 20161120
